FAERS Safety Report 13565091 (Version 1)
Quarter: 2017Q2

REPORT INFORMATION
  Report Type: Spontaneous
  Country: US (occurrence: US)
  Receive Date: 20170519
  Receipt Date: 20170519
  Transmission Date: 20170830
  Serious: No
  Sender: FDA-Public Use
  Company Number: US-BAUSCH-BL-2017-001140

PATIENT
  Age: 79 Year
  Sex: Male

DRUGS (2)
  1. NASONEX [Concomitant]
     Active Substance: MOMETASONE FUROATE
     Indication: PRODUCT USED FOR UNKNOWN INDICATION
     Dosage: EVERY MORNING
     Route: 045
  2. IPRATROPIUM BROMIDE NASAL SOLUTION 0.06% [Suspect]
     Active Substance: IPRATROPIUM BROMIDE
     Indication: RHINORRHOEA
     Route: 045
     Dates: start: 2016

REACTIONS (1)
  - Drug ineffective [Unknown]
